FAERS Safety Report 7590656-7 (Version None)
Quarter: 2011Q3

REPORT INFORMATION
  Report Type: 
  Country: None (occurrence: None)
  Receive Date: 20110705
  Receipt Date: 20110701
  Transmission Date: 20111222
  Serious: Yes (Other)
  Sender: FDA-Public Use
  Company Number: US-CEPHALON-US023732

PATIENT
  Age: 32 Year
  Sex: Female

DRUGS (2)
  1. TIAGABINE HCL [Suspect]
     Indication: COMPLEX PARTIAL SEIZURES
     Dosage: 20-24 MG
     Route: 048
  2. TIAGABINE HCL [Suspect]
     Indication: GRAND MAL CONVULSION

REACTIONS (3)
  - CONVULSION [None]
  - MATERNAL EXPOSURE DURING PREGNANCY [None]
  - TOXICITY TO VARIOUS AGENTS [None]
